FAERS Safety Report 7424443 (Version 6)
Quarter: 2015Q1

REPORT INFORMATION
  Report Type: Spontaneous
  Country: US (occurrence: US)
  Receive Date: 20100618
  Receipt Date: 20150120
  Transmission Date: 20150721
  Serious: Yes (Hospitalization)
  Sender: FDA-Public Use
  Company Number: US-BAYER-201025028NA

PATIENT
  Age: 27 Year
  Sex: Female
  Weight: 52 kg

DRUGS (2)
  1. YASMIN [Suspect]
     Active Substance: DROSPIRENONE\ETHINYL ESTRADIOL
     Indication: ACNE
     Dosage: UNK
     Route: 048
     Dates: start: 20050523, end: 20070531
  2. GARDASIL [Concomitant]
     Active Substance: HUMAN PAPILLOMAVIRUS QUADRIVALENT (TYPES 6, 11, 16, AND 18) VACCINE, RECOMBINANT
     Route: 048

REACTIONS (7)
  - Gait disturbance [Recovered/Resolved]
  - Cerebrovascular accident [Recovered/Resolved]
  - Diplopia [Recovered/Resolved]
  - Headache [Recovered/Resolved]
  - Coordination abnormal [Recovered/Resolved]
  - Hypoaesthesia oral [Recovered/Resolved]
  - Hypoaesthesia [Recovered/Resolved]

NARRATIVE: CASE EVENT DATE: 20070531
